FAERS Safety Report 5514960-9 (Version None)
Quarter: 2007Q4

REPORT INFORMATION
  Report Type: 
  Country: None (occurrence: None)
  Receive Date: 20071113
  Receipt Date: 20061020
  Transmission Date: 20080405
  Serious: No
  Sender: FDA-Public Use
  Company Number: A0624387A

PATIENT
  Age: 67 Year
  Sex: Female

DRUGS (15)
  1. COREG [Suspect]
     Indication: CARDIOMYOPATHY
     Dosage: 3.125MG TWICE PER DAY
     Route: 048
     Dates: start: 20060901, end: 20061017
  2. LIPITOR [Suspect]
     Indication: BLOOD CHOLESTEROL INCREASED
     Dosage: 80MG PER DAY
     Route: 048
     Dates: end: 20060901
  3. HYDROCODONE BITARTRATE [Concomitant]
  4. ARTHRITIS MEDICATION [Concomitant]
  5. INSULIN [Concomitant]
  6. LEVOTHYROXINE SODIUM [Concomitant]
  7. AMIODARONE HCL [Concomitant]
  8. FLUOXETINE [Concomitant]
  9. BUPROPION HCL [Concomitant]
  10. PRILOSEC [Concomitant]
  11. ZETIA [Concomitant]
  12. WARFARIN SODIUM [Concomitant]
  13. ATACAND [Concomitant]
  14. TORSEMIDE [Concomitant]
  15. PROVIGIL [Concomitant]

REACTIONS (1)
  - MYALGIA [None]
